FAERS Safety Report 6425486-2 (Version None)
Quarter: 2009Q4

REPORT INFORMATION
  Report Type: 
  Country: None (occurrence: None)
  Receive Date: 20091103
  Receipt Date: 20091027
  Transmission Date: 20100525
  Serious: Yes (Other)
  Sender: FDA-Public Use
  Company Number: FR-PFIZER INC-2009288940

PATIENT
  Age: 65 Year

DRUGS (3)
  1. CELEBREX [Suspect]
     Dosage: 100 MG, 1X/DAY
  2. CELEBREX [Suspect]
     Dosage: 100 MG, 2X/DAY
  3. METHOTREXATE SODIUM [Concomitant]

REACTIONS (1)
  - GRAND MAL CONVULSION [None]
